FAERS Safety Report 17843394 (Version 8)
Quarter: 2023Q4

REPORT INFORMATION
  Report Type: Report from Study
  Country: DE (occurrence: None)
  Receive Date: 20200530
  Receipt Date: 20231117
  Transmission Date: 20240110
  Serious: Yes (Other)
  Sender: FDA-Public Use
  Company Number: 2019SE75967

PATIENT
  Age: 62 Year
  Sex: Female
  Weight: 85.8 kg

DRUGS (5)
  1. FULVESTRANT [Suspect]
     Active Substance: FULVESTRANT
     Indication: Breast cancer metastatic
     Route: 030
     Dates: start: 20190319
  2. KISQALI [Suspect]
     Active Substance: RIBOCICLIB
     Indication: Breast cancer metastatic
     Dosage: 600 MG, DAILY (SCHEMA 21 DAYS INTAKE, THAN 7 DAYS PAUSE)
     Route: 048
     Dates: start: 20190320, end: 20190903
  3. KISQALI [Suspect]
     Active Substance: RIBOCICLIB
     Indication: Breast cancer metastatic
     Dosage: 400 MG, DAILY (SCHEMA 21 DAYS INTAKE, THAN 7 DAYS PAUSE)
     Route: 048
     Dates: start: 20190904, end: 20210831
  4. HYDROMORPHONE [Suspect]
     Active Substance: HYDROMORPHONE
     Indication: Product used for unknown indication
     Route: 065
  5. AFINITOR [Concomitant]
     Active Substance: EVEROLIMUS

REACTIONS (7)
  - Thrombocytopenia [Recovered/Resolved]
  - Procedural pain [Recovered/Resolved]
  - Hypokalaemia [Recovered/Resolved]
  - Nausea [Not Recovered/Not Resolved]
  - Gamma-glutamyltransferase increased [Recovered/Resolved]
  - Weight decreased [Unknown]
  - Sleep disorder [Unknown]

NARRATIVE: CASE EVENT DATE: 20190409
